FAERS Safety Report 19036516 (Version 1)
Quarter: 2021Q1

REPORT INFORMATION
  Report Type: Spontaneous
  Country: CA (occurrence: CA)
  Receive Date: 20210322
  Receipt Date: 20210322
  Transmission Date: 20210420
  Serious: Yes (Other)
  Sender: FDA-Public Use
  Company Number: CA-ORGANON-1602CAN011168

PATIENT
  Age: 64 Year
  Sex: Female

DRUGS (4)
  1. FLUTICASONE + SALMETEROL [Concomitant]
     Active Substance: FLUTICASONE FUROATE\SALMETEROL XINAFOATE
     Dosage: 250MCG?50MCG (1 INH BID)
  2. INDAPAMIDE;PERINDOPRIL [Concomitant]
     Active Substance: INDAPAMIDE\PERINDOPRIL
     Dosage: 1,25MG?4MG (1 TABLET DAILY)
  3. SALBUTAMOL [Concomitant]
     Active Substance: ALBUTEROL
     Dosage: 100MCG (QID PRN (NEVER USED)
  4. NASONEX [Suspect]
     Active Substance: MOMETASONE FUROATE
     Indication: SEASONAL ALLERGY
     Dosage: 50MCG/VAPORISATION (1 DOSE IN EACH NOSTRIL TWICE DAILY), 2 EVERY 1 DAY
     Route: 045
     Dates: start: 20080915, end: 20150901

REACTIONS (3)
  - Face oedema [Recovered/Resolved]
  - Hypoaesthesia [Recovered/Resolved]
  - Speech disorder [Recovered/Resolved]

NARRATIVE: CASE EVENT DATE: 20150831
